FAERS Safety Report 19461616 (Version 1)
Quarter: 2021Q2

REPORT INFORMATION
  Report Type: Spontaneous
  Country: US (occurrence: US)
  Receive Date: 20210625
  Receipt Date: 20210625
  Transmission Date: 20210717
  Serious: Yes (Death, Other)
  Sender: FDA-Public Use
  Company Number: US-PURDUE-USA-2021-0272029

PATIENT
  Age: 25 Year
  Sex: Male

DRUGS (1)
  1. OXYCONTIN [Suspect]
     Active Substance: OXYCODONE HYDROCHLORIDE
     Indication: JOINT INJURY
     Dosage: UNKNOWN
     Route: 048

REACTIONS (4)
  - Acute respiratory distress syndrome [Fatal]
  - Multiple organ dysfunction syndrome [Fatal]
  - Overdose [Unknown]
  - Sepsis [Fatal]

NARRATIVE: CASE EVENT DATE: 20020516
